FAERS Safety Report 9651947 (Version 1)
Quarter: 2013Q4

REPORT INFORMATION
  Report Type: Spontaneous
  Country: GB (occurrence: GB)
  Receive Date: 20131029
  Receipt Date: 20131029
  Transmission Date: 20140711
  Serious: Yes (Hospitalization)
  Sender: FDA-Public Use
  Company Number: PHHY2013GB118214

PATIENT
  Age: 36 Year
  Sex: Male

DRUGS (3)
  1. METHADONE [Suspect]
     Indication: DRUG DEPENDENCE
     Dosage: 375 MG, UNK
     Dates: start: 1997
  2. VENLAFAXINE [Interacting]
     Indication: DEPRESSION
     Dosage: 375 MG, UNK
     Dates: start: 200902
  3. QUETIAPINE [Interacting]
     Indication: DEPRESSION
     Dosage: 50 MG, QHS
     Dates: start: 200905

REACTIONS (11)
  - Neuroleptic malignant syndrome [Recovered/Resolved]
  - Paranoia [Recovered/Resolved]
  - Confusional state [Recovered/Resolved]
  - Aggression [Recovered/Resolved]
  - Pyrexia [Recovered/Resolved]
  - Hallucinations, mixed [Recovered/Resolved]
  - Choreoathetosis [Recovered/Resolved]
  - Muscle rigidity [Recovered/Resolved]
  - Hyperhidrosis [Recovered/Resolved]
  - Agitation [Recovered/Resolved]
  - Tachycardia [Recovered/Resolved]
